FAERS Safety Report 8337385-X (Version None)
Quarter: 2012Q2

REPORT INFORMATION
  Report Type: 
  Country: None (occurrence: None)
  Receive Date: 20120504
  Receipt Date: 20110912
  Transmission Date: 20120825
  Serious: Yes (Other)
  Sender: FDA-Public Use
  Company Number: US-TEVA-2011003953

PATIENT
  Sex: Male
  Weight: 86.26 kg

DRUGS (3)
  1. NUVIGIL [Suspect]
     Indication: POOR QUALITY SLEEP
     Route: 048
     Dates: start: 20100725
  2. NIASPAN [Concomitant]
     Indication: BLOOD CHOLESTEROL
  3. ASPIRIN [Concomitant]
     Dates: start: 20010101

REACTIONS (2)
  - CHEST DISCOMFORT [None]
  - DEPRESSED MOOD [None]
